FAERS Safety Report 4556181-2 (Version None)
Quarter: 2005Q1

REPORT INFORMATION
  Report Type: 
  Country: None (occurrence: None)
  Receive Date: 20050103
  Receipt Date: 20040902
  Transmission Date: 20050727
  Serious: No
  Sender: FDA-Public Use
  Company Number: 2004UW18842

PATIENT
  Sex: Male

DRUGS (3)
  1. CRESTOR [Suspect]
     Dosage: 20 MG PO
     Route: 048
  2. ATENOLOL [Concomitant]
  3. ZOLOFT [Concomitant]

REACTIONS (1)
  - RHABDOMYOLYSIS [None]
